FAERS Safety Report 12695422 (Version 2)
Quarter: 2016Q4

REPORT INFORMATION
  Report Type: Spontaneous
  Country: US (occurrence: US)
  Receive Date: 20160829
  Receipt Date: 20161019
  Transmission Date: 20170207
  Serious: Yes (Other)
  Sender: FDA-Public Use
  Company Number: US-PFIZER INC-2016399928

PATIENT
  Age: 75 Year
  Sex: Female
  Weight: 108.84 kg

DRUGS (4)
  1. EPINEPHRINE. [Suspect]
     Active Substance: EPINEPHRINE
     Indication: HYPERSENSITIVITY
     Dosage: 0.3 MG, UNK
     Dates: start: 201601
  2. BENADRYL [Concomitant]
     Active Substance: DIPHENHYDRAMINE HYDROCHLORIDE
     Dosage: UNK, AS NEEDED
     Dates: start: 20160816
  3. ALKA-SELTZER GOLD [Concomitant]
     Active Substance: ANHYDROUS CITRIC ACID\POTASSIUM BICARBONATE\SODIUM BICARBONATE
     Dosage: UNK, AS NEEDED
     Dates: start: 20160816
  4. EPINEPHRINE. [Suspect]
     Active Substance: EPINEPHRINE
     Indication: ANAPHYLACTIC REACTION
     Dosage: 0.3 MG, UNK
     Dates: start: 20160816, end: 20160817

REACTIONS (4)
  - Injection site pain [Recovered/Resolved]
  - Product quality issue [Recovered/Resolved]
  - Drug effect incomplete [Unknown]
  - Accidental exposure to product [Recovered/Resolved]

NARRATIVE: CASE EVENT DATE: 20160816
